FAERS Safety Report 7002431-2 (Version None)
Quarter: 2010Q3

REPORT INFORMATION
  Report Type: 
  Country: None (occurrence: None)
  Receive Date: 20100917
  Receipt Date: 20100917
  Transmission Date: 20110219
  Serious: Yes (Other)
  Sender: FDA-Public Use
  Company Number: None

PATIENT
  Age: 44 Year
  Sex: Female
  Weight: 90.7194 kg

DRUGS (1)
  1. OXYCONTIN [Suspect]

REACTIONS (6)
  - ASTHENIA [None]
  - DIARRHOEA [None]
  - PAIN [None]
  - PRODUCT QUALITY ISSUE [None]
  - PRODUCT SOLUBILITY ABNORMAL [None]
  - WITHDRAWAL SYNDROME [None]
